FAERS Safety Report 13205657 (Version 2)
Quarter: 2017Q2

REPORT INFORMATION
  Report Type: Spontaneous
  Country: GR (occurrence: GR)
  Receive Date: 20170208
  Receipt Date: 20170425
  Transmission Date: 20170830
  Serious: Yes (Hospitalization, Other)
  Sender: FDA-Public Use
  Company Number: GR-MERCK KGAA-1062888

PATIENT
  Sex: Female

DRUGS (1)
  1. NOVOTHYROX [Suspect]
     Active Substance: LEVOTHYROXINE SODIUM
     Indication: HYPOTHYROIDISM

REACTIONS (5)
  - Premature delivery [Recovered/Resolved]
  - Haemorrhage in pregnancy [Unknown]
  - Cytomegalovirus test positive [Unknown]
  - Cervical incompetence [Recovered/Resolved]
  - Premature separation of placenta [Recovered/Resolved]
